FAERS Safety Report 6719689-7 (Version None)
Quarter: 2010Q2

REPORT INFORMATION
  Report Type: 
  Country: None (occurrence: None)
  Receive Date: 20100511
  Receipt Date: 20100503
  Transmission Date: 20101027
  Serious: Yes (Death, Other)
  Sender: FDA-Public Use
  Company Number: NL-MILLENNIUM PHARMACEUTICALS, INC.-2010-02358

PATIENT

DRUGS (5)
  1. VELCADE [Suspect]
     Indication: MULTIPLE MYELOMA
     Dosage: UNK
     Route: 042
     Dates: start: 20090907, end: 20100208
  2. FLUCONAZOLE [Concomitant]
     Dosage: 50 MG, UNK
  3. ZELITREX                           /01269701/ [Concomitant]
     Dosage: 1000 MG, UNK
  4. SPIRONOLACTONE [Concomitant]
  5. FUROSEMIDE [Concomitant]
     Dosage: 20 MG, UNK

REACTIONS (3)
  - ATRIAL FIBRILLATION [None]
  - DISEASE PROGRESSION [None]
  - THROMBOCYTOPENIA [None]
